FAERS Safety Report 20360881 (Version 3)
Quarter: 2022Q3

REPORT INFORMATION
  Report Type: Spontaneous
  Country: FR (occurrence: FR)
  Receive Date: 20220121
  Receipt Date: 20220824
  Transmission Date: 20221026
  Serious: Yes (Hospitalization, Other)
  Sender: FDA-Public Use
  Company Number: FR-BRISTOL-MYERS SQUIBB COMPANY-BMS-2022-005318

PATIENT
  Age: 75 Year
  Sex: Male
  Weight: 82 kg

DRUGS (3)
  1. OPDIVO [Suspect]
     Active Substance: NIVOLUMAB
     Indication: Pleural mesothelioma
     Dosage: 360 MILLIGRAM, Q3WK
     Route: 042
     Dates: start: 20210929, end: 20211222
  2. OPDIVO [Suspect]
     Active Substance: NIVOLUMAB
     Dosage: 360 MILLIGRAM, Q3WK
     Route: 042
     Dates: start: 20220112
  3. YERVOY [Suspect]
     Active Substance: IPILIMUMAB
     Indication: Pleural mesothelioma
     Dosage: 1 MILLIGRAM/KILOGRAM( 82MG)
     Route: 042
     Dates: start: 20210929, end: 20211222

REACTIONS (16)
  - Coma [Recovered/Resolved with Sequelae]
  - Diabetic ketoacidosis [Recovered/Resolved with Sequelae]
  - Diabetes mellitus [Recovered/Resolved with Sequelae]
  - Dermatitis allergic [Unknown]
  - Visual impairment [Unknown]
  - Hyperaesthesia [Unknown]
  - Chest pain [Unknown]
  - Decreased appetite [Unknown]
  - Weight decreased [Unknown]
  - Neuralgia [Unknown]
  - Erythema [Unknown]
  - Dyspnoea [Unknown]
  - Back pain [Unknown]
  - Rash [Unknown]
  - Myalgia [Unknown]
  - Vertigo [Unknown]

NARRATIVE: CASE EVENT DATE: 20211222
